FAERS Safety Report 9341884 (Version 1)
Quarter: 2013Q2

REPORT INFORMATION
  Report Type: Spontaneous
  Country: AU (occurrence: AU)
  Receive Date: 20130611
  Receipt Date: 20130611
  Transmission Date: 20140414
  Serious: Yes (Other)
  Sender: FDA-Public Use
  Company Number: AU-PFIZER INC-2013174402

PATIENT
  Sex: Male

DRUGS (1)
  1. CHAMPIX [Suspect]
     Dosage: UNK

REACTIONS (6)
  - Haemorrhage [Unknown]
  - Constipation [Unknown]
  - Headache [Unknown]
  - Middle insomnia [Unknown]
  - Insomnia [Unknown]
  - Tobacco user [Unknown]
